FAERS Safety Report 15224795 (Version 1)
Quarter: 2018Q3

REPORT INFORMATION
  Report Type: Spontaneous
  Country: US (occurrence: US)
  Receive Date: 20180731
  Receipt Date: 20180731
  Transmission Date: 20181010
  Serious: Yes (Other)
  Sender: FDA-Public Use
  Company Number: PHHY2018US052736

PATIENT
  Age: 33 Year
  Sex: Female

DRUGS (1)
  1. PREDNISONE. [Suspect]
     Active Substance: PREDNISONE
     Indication: COLITIS ULCERATIVE
     Dosage: 40 MG, QW
     Route: 065

REACTIONS (5)
  - Dyspnoea [Unknown]
  - Hypoxia [Recovered/Resolved]
  - Hypotension [Unknown]
  - Rash [Recovered/Resolved]
  - Frequent bowel movements [Unknown]
